FAERS Safety Report 8144643-0 (Version None)
Quarter: 2012Q1

REPORT INFORMATION
  Report Type: 
  Country: None (occurrence: None)
  Receive Date: 20120214
  Receipt Date: 20120203
  Transmission Date: 20120608
  Serious: Yes (Other)
  Sender: FDA-Public Use
  Company Number: TPA2011A07098

PATIENT
  Age: 62 Year
  Sex: Male

DRUGS (1)
  1. ACTOS [Suspect]
     Indication: TYPE 2 DIABETES MELLITUS
     Dosage: 30 MG, 1 IN 1 D
     Dates: start: 20090331, end: 20111006

REACTIONS (7)
  - MICTURITION URGENCY [None]
  - HAEMATURIA [None]
  - NOCTURIA [None]
  - BLADDER TRANSITIONAL CELL CARCINOMA [None]
  - RENAL CYST [None]
  - POLLAKIURIA [None]
  - HYPERADRENALISM [None]
